FAERS Safety Report 5030654-0 (Version None)
Quarter: 2006Q2

REPORT INFORMATION
  Report Type: 
  Country: None (occurrence: None)
  Receive Date: 20060615
  Receipt Date: 20060608
  Transmission Date: 20061013
  Serious: Yes (Death)
  Sender: FDA-Public Use
  Company Number: DEWYE701208JUN06

PATIENT
  Sex: Female

DRUGS (1)
  1. TYGACIL [Suspect]
     Indication: SEPSIS
     Dates: start: 20060101

REACTIONS (2)
  - DISEASE PROGRESSION [None]
  - SEPSIS [None]
